FAERS Safety Report 4786799-3 (Version None)
Quarter: 2005Q4

REPORT INFORMATION
  Report Type: 
  Country: None (occurrence: None)
  Receive Date: 20051004
  Receipt Date: 20040811
  Transmission Date: 20060501
  Serious: Yes (Hospitalization)
  Sender: FDA-Public Use
  Company Number: DE-JNJFOC-20040803467

PATIENT
  Age: 24 Year
  Sex: Female

DRUGS (4)
  1. TRAMAL LONG [Suspect]
     Indication: DRUG USE FOR UNKNOWN INDICATION
     Dosage: 2 TABLETS.
     Route: 048
  2. VOMEX [Concomitant]
  3. VOMEX [Concomitant]
  4. BETAHISTINE [Concomitant]

REACTIONS (4)
  - BLOOD GASES ABNORMAL [None]
  - CONVULSION [None]
  - DIZZINESS [None]
  - NAUSEA [None]
